FAERS Safety Report 4282093-8 (Version None)
Quarter: 2004Q1

REPORT INFORMATION
  Report Type: 
  Country: None (occurrence: None)
  Receive Date: 20040130
  Receipt Date: 20030422
  Transmission Date: 20041129
  Serious: No
  Sender: FDA-Public Use
  Company Number: US-BRISTOL-MYERS SQUIBB COMPANY-12248308

PATIENT
  Age: 48 Year
  Sex: Female
  Weight: 107 kg

DRUGS (8)
  1. DESYREL [Suspect]
     Indication: INSOMNIA
     Route: 048
     Dates: start: 20030411, end: 20030418
  2. AMARYL [Concomitant]
  3. PROZAC [Concomitant]
  4. AVANDIA [Concomitant]
  5. WELLBUTRIN [Concomitant]
  6. LISINOPRIL [Concomitant]
  7. GLUCOPHAGE [Concomitant]
  8. LIPITOR [Concomitant]

REACTIONS (2)
  - OEDEMA PERIPHERAL [None]
  - WEIGHT INCREASED [None]
